FAERS Safety Report 12312253 (Version 2)
Quarter: 2016Q2

REPORT INFORMATION
  Report Type: Report from Study
  Country: CN (occurrence: CN)
  Receive Date: 20160428
  Receipt Date: 20160504
  Transmission Date: 20160815
  Serious: Yes (Other)
  Sender: FDA-Public Use
  Company Number: CN-ROCHE-1745196

PATIENT

DRUGS (4)
  1. TRASTUZUMAB [Suspect]
     Active Substance: TRASTUZUMAB
     Dosage: MAINTAINENCE DOSE.
     Route: 042
  2. TRASTUZUMAB [Suspect]
     Active Substance: TRASTUZUMAB
     Indication: HER-2 POSITIVE GASTRIC CANCER
     Dosage: LOADING DOSE.
     Route: 042
  3. PACLITAXEL. [Suspect]
     Active Substance: PACLITAXEL
     Indication: HER-2 POSITIVE GASTRIC CANCER
     Dosage: ON DAY 1.
     Route: 042
  4. GIMERACIL/OTERACIL POTASSIUM/TEGAFUR [Suspect]
     Active Substance: GIMERACIL\OTERACIL\TEGAFUR
     Indication: HER-2 POSITIVE GASTRIC CANCER
     Dosage: DAY 1 TO 14 FOR 3 WEEKS FOR 1 CYCLE.
     Route: 048

REACTIONS (14)
  - Flushing [Unknown]
  - Vomiting [Unknown]
  - Haemoglobin decreased [Unknown]
  - Thrombocytopenia [Unknown]
  - Myalgia [Unknown]
  - Diarrhoea [Unknown]
  - Chills [Unknown]
  - Pyrexia [Unknown]
  - Decreased appetite [Unknown]
  - Nausea [Unknown]
  - Neutropenia [Unknown]
  - Fatigue [Unknown]
  - Alopecia [Unknown]
  - Neuropathy peripheral [Unknown]
